FAERS Safety Report 6609574-3 (Version None)
Quarter: 2010Q1

REPORT INFORMATION
  Report Type: 
  Country: None (occurrence: None)
  Receive Date: 20100302
  Receipt Date: 20100301
  Transmission Date: 20100710
  Serious: Yes (Hospitalization)
  Sender: FDA-Public Use
  Company Number: IT-SANOFI-AVENTIS-2010SA007955

PATIENT
  Age: 70 Year
  Sex: Male

DRUGS (1)
  1. ZARIVIZ [Suspect]
     Indication: BRONCHITIS
     Route: 030
     Dates: start: 20100209

REACTIONS (4)
  - AGITATION [None]
  - DYSPNOEA [None]
  - ERYTHEMA [None]
  - TACHYCARDIA [None]
